FAERS Safety Report 7761472-8 (Version None)
Quarter: 2011Q3

REPORT INFORMATION
  Report Type: 
  Country: None (occurrence: None)
  Receive Date: 20110915
  Receipt Date: 20110107
  Transmission Date: 20111222
  Serious: Yes (Other)
  Sender: FDA-Public Use
  Company Number: FR-20110002

PATIENT
  Age: 67 Year
  Sex: Male

DRUGS (5)
  1. NICORANDIL (NICORANDIL) [Concomitant]
  2. ATENOLOL [Concomitant]
  3. HEXABRIX [Suspect]
     Indication: ARTERIOGRAM
  4. MOLSIDOMINE (MOLSIDOMINE) [Concomitant]
  5. BEPRIDIL (BEPRIDIL) [Suspect]
     Indication: CORONARY ARTERY DISEASE
     Dosage: 200 MG (200 MG, 1 IN 1 D), INTRACORONARY
     Route: 022

REACTIONS (2)
  - TORSADE DE POINTES [None]
  - ARTERIOSCLEROSIS CORONARY ARTERY [None]
